FAERS Safety Report 6295195-1 (Version None)
Quarter: 2009Q3

REPORT INFORMATION
  Report Type: 
  Country: None (occurrence: None)
  Receive Date: 20090803
  Receipt Date: 20090731
  Transmission Date: 20100115
  Serious: Yes (Hospitalization)
  Sender: FDA-Public Use
  Company Number: US-B.I. PHARMACEUTICALS,INC./RIDGEFIELD-2009-BP-03018BP

PATIENT
  Sex: Male
  Weight: 56.5 kg

DRUGS (17)
  1. SPIRIVA [Suspect]
     Indication: CHRONIC OBSTRUCTIVE PULMONARY DISEASE
     Dosage: 18 MCG
     Route: 055
     Dates: start: 20070801
  2. CARDIAC MEDICATIONS [Concomitant]
  3. SIMVASTATIN [Concomitant]
     Indication: HYPERLIPIDAEMIA
  4. SIMVASTATIN [Concomitant]
     Indication: HYPERCHOLESTEROLAEMIA
  5. ALBUTEROL [Concomitant]
  6. ASPIRIN [Concomitant]
     Indication: CARDIAC DISORDER
     Dosage: 81 MG
  7. METOPROLOL TARTRATE [Concomitant]
  8. AMIODARONE [Concomitant]
  9. PLAVIX [Concomitant]
     Dosage: 75 MG
  10. B-12 SHOT [Concomitant]
     Route: 030
  11. OXYGEN [Concomitant]
  12. NITROSTAT [Concomitant]
     Indication: CHEST PAIN
     Route: 060
  13. VENTOLIN [Concomitant]
     Indication: ASTHMA
     Route: 055
  14. COLACE [Concomitant]
     Indication: GASTROINTESTINAL DISORDER
     Dosage: 400 MG
     Route: 048
  15. OMEPRAZOLE [Concomitant]
     Indication: GASTROINTESTINAL DISORDER
     Route: 048
  16. PERCOCET [Concomitant]
     Indication: ANALGESIC THERAPY
     Route: 048
  17. STOOL SOFTENER [Concomitant]

REACTIONS (3)
  - CORONARY ARTERY DISEASE [None]
  - OROPHARYNGEAL PAIN [None]
  - THROAT IRRITATION [None]
